FAERS Safety Report 14081472 (Version 4)
Quarter: 2018Q1

REPORT INFORMATION
  Report Type: Spontaneous
  Country: NL (occurrence: NL)
  Receive Date: 20171013
  Receipt Date: 20180123
  Transmission Date: 20180508
  Serious: Yes (Hospitalization, Other)
  Sender: FDA-Public Use
  Company Number: NL-BAYER-2017-190271

PATIENT
  Age: 68 Year
  Sex: Male

DRUGS (14)
  1. DICLOFENAC [Concomitant]
     Active Substance: DICLOFENAC
     Dosage: 50 MG, TID
  2. MOVICOLON [Concomitant]
     Active Substance: POLYETHYLENE GLYCOL 3350\POTASSIUM CHLORIDE\SODIUM BICARBONATE\SODIUM CHLORIDE
     Dosage: UNK
  3. MOMETASONE FUROATE. [Concomitant]
     Active Substance: MOMETASONE FUROATE
     Dosage: 50 ?G, PRN
  4. SERETIDE [Concomitant]
     Active Substance: FLUTICASONE PROPIONATE\SALMETEROL XINAFOATE
     Dosage: AEROSOL 25/250 UG 2DD2
  5. PREDNISON [Concomitant]
     Active Substance: PREDNISONE
  6. XOFIGO [Suspect]
     Active Substance: RADIUM RA-223 DICHLORIDE
     Indication: PROSTATE CANCER METASTATIC
     Dosage: UNK
     Dates: start: 20170823, end: 20170823
  7. XOFIGO [Suspect]
     Active Substance: RADIUM RA-223 DICHLORIDE
     Indication: PROSTATE CANCER METASTATIC
     Dosage: UNK
     Dates: start: 20170726, end: 20170726
  8. XOFIGO [Suspect]
     Active Substance: RADIUM RA-223 DICHLORIDE
     Indication: PROSTATE CANCER METASTATIC
     Dosage: UNK
     Dates: start: 20170531, end: 20170531
  9. DURATEARS [PARAFFIN] [Concomitant]
     Dosage: FLACON 15ML PRN 1 DROP
  10. XOFIGO [Suspect]
     Active Substance: RADIUM RA-223 DICHLORIDE
     Indication: PROSTATE CANCER METASTATIC
     Dosage: UNK
     Dates: start: 20170921, end: 20170921
  11. GLYCOPYRONIUM [Concomitant]
     Active Substance: GLYCOPYRRONIUM
     Dosage: 44 ?G, QD
  12. XOFIGO [Suspect]
     Active Substance: RADIUM RA-223 DICHLORIDE
     Indication: PROSTATE CANCER METASTATIC
     Dosage: UNK
     Dates: start: 20170628, end: 20170628
  13. ZOLADEX [Concomitant]
     Active Substance: GOSERELIN ACETATE
     Dosage: IMPLANTATION 10,8MG IN WWSP 1 X 10.80 MG/TWELVE WEEKS
  14. PCM [Concomitant]
     Dosage: 1 G, TID

REACTIONS (5)
  - Pneumothorax [Recovering/Resolving]
  - Lung disorder [Recovering/Resolving]
  - Pneumocystis jirovecii infection [None]
  - Dyspnoea [Recovering/Resolving]
  - Neoplasm malignant [Recovering/Resolving]

NARRATIVE: CASE EVENT DATE: 20170927
